FAERS Safety Report 7631430-2 (Version None)
Quarter: 2011Q3

REPORT INFORMATION
  Report Type: 
  Country: None (occurrence: None)
  Receive Date: 20110715
  Receipt Date: 20110701
  Transmission Date: 20111222
  Serious: Yes (Other)
  Sender: FDA-Public Use
  Company Number: 2011P1007549

PATIENT
  Age: 40 Year
  Sex: Female
  Weight: 108.8633 kg

DRUGS (5)
  1. HYDROCODONE [Concomitant]
  2. FENTANYL-75 [Suspect]
     Indication: PAIN
     Dosage: 1 PATCH; Q72H; TDER
     Route: 062
     Dates: start: 20020101, end: 20110601
  3. FENTANYL CITRATE [Suspect]
     Indication: PAIN
     Dosage: 1 PATCH; Q72H; TDER
     Route: 062
     Dates: start: 20110601
  4. NEURONTIN [Concomitant]
  5. UNSPECIFIED ANTIDEPRESSANT [Concomitant]

REACTIONS (2)
  - PRODUCT ADHESION ISSUE [None]
  - INADEQUATE ANALGESIA [None]
